FAERS Safety Report 12549222 (Version 1)
Quarter: 2016Q3

REPORT INFORMATION
  Report Type: Spontaneous
  Country: US (occurrence: US)
  Receive Date: 20160712
  Receipt Date: 20160712
  Transmission Date: 20161109
  Serious: Yes (Other)
  Sender: FDA-Public Use
  Company Number: US-PFIZER INC-2016337377

PATIENT
  Sex: Female

DRUGS (1)
  1. DEPO-PROVERA [Suspect]
     Active Substance: MEDROXYPROGESTERONE ACETATE

REACTIONS (10)
  - Feeling abnormal [Unknown]
  - Arthralgia [Unknown]
  - Migraine [Unknown]
  - Groin pain [Unknown]
  - Depression [Unknown]
  - Hypoaesthesia [Unknown]
  - Mood swings [Unknown]
  - Skin disorder [Unknown]
  - Suicidal ideation [Unknown]
  - Menorrhagia [Unknown]
